FAERS Safety Report 17006904 (Version 2)
Quarter: 2019Q4

REPORT INFORMATION
  Report Type: Spontaneous
  Country: BR (occurrence: BR)
  Receive Date: 20191107
  Receipt Date: 20191115
  Transmission Date: 20200122
  Serious: Yes (Other)
  Sender: FDA-Public Use
  Company Number: BR-AMGEN-BRASP2017088841

PATIENT
  Age: 79 Year
  Sex: Female

DRUGS (1)
  1. ENBREL [Suspect]
     Active Substance: ETANERCEPT
     Indication: PRODUCT USED FOR UNKNOWN INDICATION
     Dosage: UNK UNK, WEEKLY EVERY MONDAY
     Route: 065
     Dates: start: 20170529

REACTIONS (7)
  - Limb injury [Unknown]
  - Wrong technique in device usage process [Unknown]
  - Fall [Unknown]
  - Product preparation error [Unknown]
  - Arthritis [Recovering/Resolving]
  - Musculoskeletal stiffness [Recovering/Resolving]
  - Injection site pain [Unknown]

NARRATIVE: CASE EVENT DATE: 2017
